FAERS Safety Report 8172538-5 (Version None)
Quarter: 2012Q1

REPORT INFORMATION
  Report Type: 
  Country: None (occurrence: None)
  Receive Date: 20120223
  Receipt Date: 20120117
  Transmission Date: 20120608
  Serious: Yes (Other)
  Sender: FDA-Public Use
  Company Number: 2012-00047

PATIENT
  Age: 61 Year
  Sex: Male
  Weight: 102.0593 kg

DRUGS (9)
  1. CYMBALTA [Concomitant]
  2. ATENOLOL [Concomitant]
  3. ASPIRIN [Concomitant]
  4. PLAVIX [Concomitant]
  5. CRESTOR [Concomitant]
  6. TRICOR [Concomitant]
  7. FISH OIL [Concomitant]
  8. METFORMIN HCL [Concomitant]
  9. ZICAM COLD REMEDY RAPIDMELTS [Suspect]
     Indication: NASOPHARYNGITIS
     Dosage: 1 RAPIDMELT EVERY 3 HOURS
     Dates: start: 20120116, end: 20120116

REACTIONS (2)
  - PALPITATIONS [None]
  - HEART RATE INCREASED [None]
